FAERS Safety Report 7015046-7 (Version None)
Quarter: 2010Q3

REPORT INFORMATION
  Report Type: 
  Country: None (occurrence: None)
  Receive Date: 20100927
  Receipt Date: 20100920
  Transmission Date: 20110219
  Serious: Yes (Hospitalization)
  Sender: FDA-Public Use
  Company Number: US-US-EMD SERONO, INC.-7018186

PATIENT
  Sex: Male
  Weight: 77 kg

DRUGS (3)
  1. REBIF [Suspect]
     Indication: MULTIPLE SCLEROSIS
     Route: 058
     Dates: start: 20050930, end: 20100628
  2. LORAZEPAM [Concomitant]
     Indication: POST-TRAUMATIC STRESS DISORDER
  3. OMEPRAZOLE [Concomitant]
     Indication: ULCER

REACTIONS (4)
  - ADVERSE DRUG REACTION [None]
  - DIVERTICULITIS [None]
  - HEPATIC ENZYME INCREASED [None]
  - SEPTIC SHOCK [None]
